FAERS Safety Report 7941227 (Version 7)
Quarter: 2014Q1

REPORT INFORMATION
  Report Type: Report from Study
  Country: AU (occurrence: AU)
  Receive Date: 20110511
  Receipt Date: 20140306
  Transmission Date: 20141002
  Serious: Yes (Hospitalization, Other)
  Sender: FDA-Public Use
  Company Number: PHHY2011AU37275

PATIENT
  Age: 68 Year
  Sex: Male
  Weight: 106 kg

DRUGS (11)
  1. EVEROLIMUS [Suspect]
     Indication: HEPATOCELLULAR CARCINOMA
     Dosage: 7.5 MG, QD
     Route: 048
     Dates: start: 20110330, end: 20110420
  2. EVEROLIMUS [Suspect]
     Dosage: 7.5 MG, QD
     Route: 048
     Dates: start: 20110421, end: 20110518
  3. SPIRONOLACTONE [Suspect]
     Dosage: 50 MG DAILY
     Route: 048
     Dates: start: 20110421
  4. OXYNORM [Suspect]
     Indication: ARTHRALGIA
     Dosage: 5 MG QPRN
     Route: 048
     Dates: start: 20110511
  5. MS CONTIN [Suspect]
     Indication: ARTHRALGIA
     Dosage: 10 MG, BID
     Route: 048
     Dates: start: 20110517
  6. FRUSEMIDE [Concomitant]
     Indication: ASCITES
     Dosage: 40 MG DAILY
     Route: 048
     Dates: start: 20110518
  7. ASPIRIN [Concomitant]
  8. SYMBICORT [Concomitant]
  9. NIFEDIPINE [Concomitant]
  10. ROSUVASTATIN [Concomitant]
  11. SALBUTAMOL [Concomitant]

REACTIONS (13)
  - Concomitant disease progression [Not Recovered/Not Resolved]
  - Neoplasm progression [Recovering/Resolving]
  - Malignant neoplasm progression [Recovering/Resolving]
  - Local swelling [Not Recovered/Not Resolved]
  - Cellulitis [Not Recovered/Not Resolved]
  - Ascites [Not Recovered/Not Resolved]
  - Hepatic encephalopathy [Unknown]
  - Hyponatraemia [Not Recovered/Not Resolved]
  - Mobility decreased [Unknown]
  - Asthenia [Unknown]
  - Rash [Unknown]
  - Paraesthesia [Unknown]
  - Joint swelling [Unknown]
